FAERS Safety Report 9911217 (Version 6)
Quarter: 2014Q4

REPORT INFORMATION
  Report Type: Spontaneous
  Country: US (occurrence: US)
  Receive Date: 20140219
  Receipt Date: 20141009
  Transmission Date: 20150529
  Serious: Yes (Hospitalization, Other)
  Sender: FDA-Public Use
  Company Number: US-009507513-1203USA02671

PATIENT
  Sex: Female
  Weight: 85.71 kg

DRUGS (4)
  1. FOSAMAX [Suspect]
     Active Substance: ALENDRONATE SODIUM
     Indication: OSTEOPENIA
  2. FOSAMAX [Suspect]
     Active Substance: ALENDRONATE SODIUM
     Indication: OSTEOPOROSIS
     Dosage: 70 MG, QW
     Route: 048
  3. FOSAMAX [Suspect]
     Active Substance: ALENDRONATE SODIUM
     Indication: OSTEOPENIA
  4. FOSAMAX [Suspect]
     Active Substance: ALENDRONATE SODIUM
     Indication: OSTEOPOROSIS
     Route: 048

REACTIONS (41)
  - Intramedullary rod insertion [Unknown]
  - Hypertension [Unknown]
  - Malignant breast lump removal [Unknown]
  - Stress fracture [Unknown]
  - Sensory loss [Unknown]
  - Intramedullary rod insertion [Recovered/Resolved]
  - Nausea [Unknown]
  - Femur fracture [Recovered/Resolved]
  - Femur fracture [Unknown]
  - Open reduction of fracture [Unknown]
  - Knee operation [Unknown]
  - Atypical femur fracture [Recovered/Resolved]
  - Femur fracture [Unknown]
  - Pathological fracture [Unknown]
  - Impaired healing [Unknown]
  - Hypercholesterolaemia [Unknown]
  - Radiotherapy to breast [Unknown]
  - Intramedullary rod insertion [Recovering/Resolving]
  - Breast mass [Unknown]
  - Post procedural constipation [Unknown]
  - Surgery [Unknown]
  - Chronic lymphocytic leukaemia [Not Recovered/Not Resolved]
  - Radius fracture [Unknown]
  - Cough [Unknown]
  - Osteoarthritis [Unknown]
  - Injury [Unknown]
  - Osteoarthritis [Unknown]
  - Osteoarthritis [Unknown]
  - Removal of internal fixation [Unknown]
  - Tibia fracture [Unknown]
  - Lymphocytic lymphoma [Not Recovered/Not Resolved]
  - Muscle strain [Unknown]
  - Myalgia [Unknown]
  - Intramedullary rod insertion [Recovered/Resolved]
  - Tibia fracture [Recovering/Resolving]
  - Intraductal proliferative breast lesion [Unknown]
  - Fracture nonunion [Unknown]
  - Breast operation [Unknown]
  - Gout [Unknown]
  - Ligament sprain [Not Recovered/Not Resolved]
  - Muscle spasms [Unknown]

NARRATIVE: CASE EVENT DATE: 200312
